FAERS Safety Report 4342017-1 (Version None)
Quarter: 2004Q2

REPORT INFORMATION
  Report Type: 
  Country: None (occurrence: None)
  Receive Date: 20040415
  Receipt Date: 20040330
  Transmission Date: 20050107
  Serious: Yes (Congenital Anomaly, Other)
  Sender: FDA-Public Use
  Company Number: USA040363575

PATIENT
  Sex: Female

DRUGS (2)
  1. HUMALOG [Suspect]
     Dates: start: 20030601
  2. LANTUS [Concomitant]

REACTIONS (4)
  - CARDIAC OPERATION [None]
  - CONGENITAL ANOMALY [None]
  - HYPERSENSITIVITY [None]
  - MATERNAL DRUGS AFFECTING FOETUS [None]
